FAERS Safety Report 4616461-9 (Version None)
Quarter: 2005Q1

REPORT INFORMATION
  Report Type: 
  Country: None (occurrence: None)
  Receive Date: 20050318
  Receipt Date: 20041201
  Transmission Date: 20050727
  Serious: Yes (Death)
  Sender: FDA-Public Use
  Company Number: 21-732-2004-M0002

PATIENT
  Age: 78 Year
  Sex: Male
  Weight: 72.5755 kg

DRUGS (4)
  1. VANTAS [Suspect]
     Indication: PROSTATE CANCER
     Dosage: 50MG/YEAR, SUBCUTANEOUS
     Route: 058
     Dates: start: 20041118, end: 20041128
  2. GLUCOTROL [Concomitant]
  3. METFORMIN HCL (GLUCOPHAGE) [Concomitant]
  4. BICALUTAMIDE (CASODEX) [Concomitant]

REACTIONS (4)
  - DYSURIA [None]
  - OESOPHAGEAL VARICES HAEMORRHAGE [None]
  - PROSTATIC SPECIFIC ANTIGEN INCREASED [None]
  - REFUSAL OF TREATMENT BY PATIENT [None]
